FAERS Safety Report 8164525-8 (Version None)
Quarter: 2012Q1

REPORT INFORMATION
  Report Type: 
  Country: None (occurrence: None)
  Receive Date: 20120224
  Receipt Date: 20120215
  Transmission Date: 20120608
  Serious: Yes (Hospitalization, Disabling)
  Sender: FDA-Public Use
  Company Number: DE-ASTRAZENECA-2012SE10786

PATIENT
  Age: 16005 Day
  Sex: Female
  Weight: 62 kg

DRUGS (3)
  1. CLOTRIMAZOLE [Interacting]
     Route: 067
     Dates: start: 20120206, end: 20120208
  2. SEROQUEL XR [Suspect]
     Dosage: 200/500 MG 1 TABLET PER DAY
     Route: 048
  3. TAMOXIFEN AL [Concomitant]
     Route: 048

REACTIONS (4)
  - ABULIA [None]
  - DEPRESSION [None]
  - DRUG INTERACTION [None]
  - SUICIDAL IDEATION [None]
